FAERS Safety Report 4926721-X (Version None)
Quarter: 2006Q1

REPORT INFORMATION
  Report Type: 
  Country: None (occurrence: None)
  Receive Date: 20060228
  Receipt Date: 20050602
  Transmission Date: 20060701
  Serious: Yes (Other)
  Sender: FDA-Public Use
  Company Number: US-GLAXOSMITHKLINE-A0560947A

PATIENT
  Age: 43 Year
  Sex: Female
  Weight: 63.6 kg

DRUGS (5)
  1. LAMICTAL [Suspect]
     Indication: BIPOLAR DISORDER
     Route: 048
     Dates: start: 20050401
  2. SEROQUEL [Concomitant]
  3. LITHIUM [Concomitant]
  4. SYNTHROID [Concomitant]
  5. AMITRIPTYLINE HCL [Concomitant]

REACTIONS (2)
  - RASH [None]
  - URTICARIA [None]
